FAERS Safety Report 16573682 (Version 1)
Quarter: 2019Q3

REPORT INFORMATION
  Report Type: Report from Study
  Country: US (occurrence: US)
  Receive Date: 20190715
  Receipt Date: 20190715
  Transmission Date: 20191004
  Serious: Yes (Other)
  Sender: FDA-Public Use
  Company Number: US-BAYER-2019-127909

PATIENT
  Age: 45 Year
  Sex: Female

DRUGS (8)
  1. NEXAVAR [Suspect]
     Active Substance: SORAFENIB
     Indication: MALIGNANT CONNECTIVE TISSUE NEOPLASM
     Dosage: 200 MG, BID
     Route: 048
     Dates: start: 20190607
  2. CYMBALTA [Concomitant]
     Active Substance: DULOXETINE HYDROCHLORIDE
     Dosage: UNK
  3. IRON [Concomitant]
     Active Substance: IRON
     Dosage: UNK
  4. TPN [AMINO ACIDS NOS;CARBOHYDRATES NOS;MINERALS NOS;VITAMINS NOS] [Concomitant]
     Dosage: UNK
  5. PRADAXA [Concomitant]
     Active Substance: DABIGATRAN ETEXILATE MESYLATE
     Dosage: UNK
  6. DEXILANT [Concomitant]
     Active Substance: DEXLANSOPRAZOLE
     Dosage: UNK
  7. NEXAVAR [Suspect]
     Active Substance: SORAFENIB
     Indication: SOFT TISSUE SARCOMA
  8. ELECTROLYTES NOS [Concomitant]
     Active Substance: ELECTROLYTES NOS
     Dosage: UNK

REACTIONS (3)
  - Blood magnesium decreased [Not Recovered/Not Resolved]
  - Off label use [None]
  - Product use in unapproved indication [None]

NARRATIVE: CASE EVENT DATE: 20190607
